FAERS Safety Report 14069414 (Version 1)
Quarter: 2017Q4

REPORT INFORMATION
  Report Type: Spontaneous
  Country: US (occurrence: US)
  Receive Date: 20171010
  Receipt Date: 20171010
  Transmission Date: 20180321
  Serious: Yes (Life-Threatening, Other)
  Sender: FDA-Public Use
  Company Number: US-CONCORDIA PHARMACEUTICALS INC.-GSH201710-005751

PATIENT
  Sex: Female

DRUGS (16)
  1. HYDROXYCHLOROQUINE [Suspect]
     Active Substance: HYDROXYCHLOROQUINE
     Indication: PRODUCT USED FOR UNKNOWN INDICATION
     Route: 048
  2. NAPROXEN. [Concomitant]
     Active Substance: NAPROXEN
  3. LEXAPRO [Concomitant]
     Active Substance: ESCITALOPRAM OXALATE
  4. VENTOLIN [Concomitant]
     Active Substance: ALBUTEROL SULFATE
  5. CARVEDILOL. [Concomitant]
     Active Substance: CARVEDILOL
  6. LEFLUNOMIDE. [Concomitant]
     Active Substance: LEFLUNOMIDE
  7. TIOTROPIUM BROMIDE [Concomitant]
     Active Substance: TIOTROPIUM BROMIDE
  8. HYDROXYCHLOROQUINE [Concomitant]
     Active Substance: HYDROXYCHLOROQUINE
  9. ARAVA [Suspect]
     Active Substance: LEFLUNOMIDE
     Indication: PRODUCT USED FOR UNKNOWN INDICATION
     Route: 048
  10. VITAMIN D [Concomitant]
     Active Substance: CHOLECALCIFEROL
  11. DIFLUCAN [Concomitant]
     Active Substance: FLUCONAZOLE
     Indication: SINUS DISORDER
  12. PRILOSEC [Concomitant]
     Active Substance: OMEPRAZOLE MAGNESIUM
  13. SALBUTAMOL [Concomitant]
     Active Substance: ALBUTEROL
  14. XANAX [Concomitant]
     Active Substance: ALPRAZOLAM
  15. CORTISONE [Concomitant]
     Active Substance: CORTISONE\HYDROCORTISONE
  16. LEVOTHYROXINE. [Concomitant]
     Active Substance: LEVOTHYROXINE

REACTIONS (16)
  - Malaise [Unknown]
  - Diabetes mellitus [Unknown]
  - Hypoglycaemia [Unknown]
  - Back pain [Unknown]
  - Product use issue [Unknown]
  - Inflammation [Unknown]
  - Hand deformity [Unknown]
  - Hunger [Unknown]
  - Nasal congestion [Unknown]
  - Chest discomfort [Unknown]
  - Haemorrhage [Unknown]
  - Nodule [Unknown]
  - Candida infection [Unknown]
  - Headache [Unknown]
  - Anxiety [Unknown]
  - Rheumatoid arthritis [Unknown]
